FAERS Safety Report 9962846 (Version 2)
Quarter: 2014Q1

REPORT INFORMATION
  Report Type: Report from Study
  Country: US (occurrence: US)
  Receive Date: 20140305
  Receipt Date: 20140305
  Transmission Date: 20141002
  Serious: No
  Sender: FDA-Public Use
  Company Number: US-ABBVIE-13P-163-1100301-00

PATIENT
  Age: 78 Year
  Sex: Male

DRUGS (5)
  1. HUMIRA [Suspect]
     Indication: CROHN^S DISEASE
     Dates: start: 20130327
  2. APRISO [Concomitant]
     Indication: CROHN^S DISEASE
  3. POTASSIUM ER [Concomitant]
     Indication: BLOOD POTASSIUM DECREASED
  4. OMEPRAZOLE [Concomitant]
     Indication: ABDOMINAL PAIN UPPER
  5. TRIAMCINOLONE [Concomitant]
     Indication: PSORIASIS

REACTIONS (8)
  - Rash macular [Recovering/Resolving]
  - Psoriasis [Recovering/Resolving]
  - Psoriasis [Recovering/Resolving]
  - Acne [Not Recovered/Not Resolved]
  - Acne [Not Recovered/Not Resolved]
  - Ecchymosis [Recovering/Resolving]
  - Skin discolouration [Recovering/Resolving]
  - Drug dose omission [Not Recovered/Not Resolved]
